FAERS Safety Report 15048820 (Version 9)
Quarter: 2023Q1

REPORT INFORMATION
  Report Type: Spontaneous
  Country: US (occurrence: US)
  Receive Date: 20180622
  Receipt Date: 20230301
  Transmission Date: 20230418
  Serious: No
  Sender: FDA-Public Use
  Company Number: US-PFIZER INC-2018252842

PATIENT
  Age: 67 Year
  Sex: Female
  Weight: 77.11 kg

DRUGS (7)
  1. SOMAVERT [Suspect]
     Active Substance: PEGVISOMANT
     Indication: Hormone therapy
     Dosage: 30 MG, DAILY
  2. SOMAVERT [Suspect]
     Active Substance: PEGVISOMANT
     Indication: Acromegaly
     Dosage: 30 MG, 1X/DAY
     Route: 058
     Dates: start: 20160615
  3. SOMAVERT [Suspect]
     Active Substance: PEGVISOMANT
     Indication: Gigantism
     Dosage: 30 MG, DAILY
     Route: 058
     Dates: start: 20170627
  4. EPIPEN [Concomitant]
     Active Substance: EPINEPHRINE
     Dosage: UNK
  5. PRAZOSIN HYDROCHLORIDE [Concomitant]
     Active Substance: PRAZOSIN HYDROCHLORIDE
     Dosage: UNK
  6. QUETIAPINE [Concomitant]
     Active Substance: QUETIAPINE
     Dosage: UNK
  7. TRAZODONE [Concomitant]
     Active Substance: TRAZODONE HYDROCHLORIDE
     Dosage: UNK

REACTIONS (3)
  - Memory impairment [Unknown]
  - Condition aggravated [Unknown]
  - Product dose omission issue [Unknown]

NARRATIVE: CASE EVENT DATE: 20180206
